FAERS Safety Report 9506415 (Version 1)
Quarter: 2013Q1

REPORT INFORMATION
  Report Type: Spontaneous
  Country: US (occurrence: None)
  Receive Date: 20130301
  Receipt Date: 20130301
  Transmission Date: 20140127
  Serious: Yes (Death)
  Sender: FDA-Public Use
  Company Number: RB-42531-2012

PATIENT
  Age: 29 Year
  Sex: Male

DRUGS (8)
  1. SUBOXONE [Suspect]
     Indication: PRODUCT USED FOR UNKNOWN INDICATION
     Dates: start: 20101223, end: 20101223
  2. METHADONE [Suspect]
     Indication: PRODUCT USED FOR UNKNOWN INDICATION
     Dates: end: 2010
  3. OXYCONTIN [Suspect]
     Indication: PRODUCT USED FOR UNKNOWN INDICATION
     Dates: end: 2010
  4. ROXICODONE [Suspect]
     Indication: PRODUCT USED FOR UNKNOWN INDICATION
     Dates: end: 2010
  5. XANAX [Suspect]
     Indication: PRODUCT USED FOR UNKNOWN INDICATION
     Dates: end: 2010
  6. ULTRAM [Suspect]
     Indication: PRODUCT USED FOR UNKNOWN INDICATION
     Dates: end: 2010
  7. VISTARIL [Suspect]
     Indication: MULTIPLE ALLERGIES
     Dates: end: 2010
  8. CELEXA [Suspect]
     Indication: DEPRESSION
     Dates: end: 2010

REACTIONS (5)
  - Substance abuse [None]
  - Toxicity to various agents [None]
  - Accidental overdose [None]
  - Euphoric mood [None]
  - Respiratory arrest [None]
